FAERS Safety Report 8589527-9 (Version None)
Quarter: 2012Q3

REPORT INFORMATION
  Report Type: 
  Country: None (occurrence: None)
  Receive Date: 20120813
  Receipt Date: 20120808
  Transmission Date: 20120928
  Serious: No
  Sender: FDA-Public Use
  Company Number: US-TEVA-353175USA

PATIENT
  Sex: Female
  Weight: 57.658 kg

DRUGS (2)
  1. CLONAZEPAM [Concomitant]
     Indication: ANXIETY
     Dosage: .5 MILLIGRAM DAILY;
     Route: 048
     Dates: start: 20040101
  2. PLAN B ONE-STEP [Suspect]
     Indication: POST COITAL CONTRACEPTION
     Dosage: 1.5 MILLIGRAM DAILY;
     Route: 048
     Dates: start: 20120730, end: 20120730

REACTIONS (8)
  - MOOD ALTERED [None]
  - FATIGUE [None]
  - MENSTRUATION IRREGULAR [None]
  - BREAST ENLARGEMENT [None]
  - BREAST PAIN [None]
  - BREAST DISCOMFORT [None]
  - NIPPLE PAIN [None]
  - BREAST TENDERNESS [None]
